FAERS Safety Report 11822164 (Version 1)
Quarter: 2015Q4

REPORT INFORMATION
  Report Type: Spontaneous
  Country: US (occurrence: US)
  Receive Date: 20151210
  Receipt Date: 20151210
  Transmission Date: 20160305
  Serious: Yes (Other)
  Sender: FDA-Public Use
  Company Number: US-LPDUSPRD-20150977

PATIENT

DRUGS (1)
  1. FOSPHENYTOIN SODIUM INJECTION, USP (025-21) [Suspect]
     Active Substance: FOSPHENYTOIN SODIUM
     Dosage: DOSE NOT PROVIDED
     Route: 065

REACTIONS (1)
  - Drug-induced liver injury [Unknown]
